FAERS Safety Report 9424783 (Version 1)
Quarter: 2013Q3

REPORT INFORMATION
  Report Type: Spontaneous
  Country: US (occurrence: US)
  Receive Date: 20130729
  Receipt Date: 20130729
  Transmission Date: 20140515
  Serious: Yes (Other)
  Sender: FDA-Public Use
  Company Number: US-PFIZER INC-2013219863

PATIENT
  Age: 39 Year
  Sex: Female
  Weight: 90.7 kg

DRUGS (9)
  1. LYRICA [Suspect]
     Indication: NEURALGIA
     Dosage: 100 MG, 3X/DAY
     Route: 048
     Dates: start: 201207
  2. LYRICA [Suspect]
     Indication: NEURALGIA
  3. MORPHINE [Concomitant]
     Dosage: UNK
  4. SOMA [Concomitant]
     Dosage: UNK
  5. PROZAC [Concomitant]
     Dosage: UNK
  6. LEVOTHYROXINE [Concomitant]
     Dosage: UNK
  7. OXYCODONE [Concomitant]
     Dosage: UNK
  8. VALIUM [Concomitant]
     Dosage: UNK
  9. VISTARIL [Concomitant]
     Dosage: UNK

REACTIONS (5)
  - Off label use [Unknown]
  - Uterine disorder [Unknown]
  - Dizziness [Unknown]
  - Tinnitus [Unknown]
  - Somnolence [Unknown]
